FAERS Safety Report 11385579 (Version 15)
Quarter: 2016Q4

REPORT INFORMATION
  Report Type: Report from Study
  Country: JP (occurrence: JP)
  Receive Date: 20150817
  Receipt Date: 20161011
  Transmission Date: 20170206
  Serious: Yes (Other)
  Sender: FDA-Public Use
  Company Number: JP-AMGEN-JPNCT2015082904

PATIENT
  Age: 45 Year
  Sex: Female
  Weight: 60.5 kg

DRUGS (31)
  1. CARFILZOMIB [Suspect]
     Active Substance: CARFILZOMIB
     Indication: PLASMA CELL MYELOMA
     Dosage: 56 MG/M2, PER CHEMO REGIM
     Route: 042
     Dates: start: 20140602
  2. MOHRUS [Concomitant]
     Active Substance: KETOPROFEN
     Indication: BACK PAIN
  3. ALMETA [Concomitant]
     Active Substance: ALCLOMETASONE DIPROPIONATE
     Indication: ECZEMA
     Dosage: UNK, AS NECESSARY
     Dates: start: 20150522
  4. BENZETHONIUM CHLORIDE [Concomitant]
     Active Substance: BENZETHONIUM CHLORIDE
     Indication: PROPHYLAXIS
  5. KIPRES [Concomitant]
     Active Substance: MONTELUKAST SODIUM
     Indication: ASTHMA
     Dosage: 10 MG, QD
     Route: 048
     Dates: start: 20140725
  6. SUMILU [Concomitant]
     Active Substance: FELBINAC
     Indication: BACK PAIN
  7. MOHRUS [Concomitant]
     Active Substance: KETOPROFEN
     Indication: MUSCULOSKELETAL PAIN
  8. VALACICLOVIR HYDROCHLORIDE [Concomitant]
     Active Substance: VALACYCLOVIR HYDROCHLORIDE
     Indication: INFECTION
     Dosage: 500 MG, QD
     Route: 048
     Dates: start: 20140924
  9. DEXAMETHASONE. [Suspect]
     Active Substance: DEXAMETHASONE
     Indication: PLASMA CELL MYELOMA
     Dosage: 20 MG, PER CHEMO REGIM
     Route: 048
     Dates: start: 20140602
  10. SUMILU [Concomitant]
     Active Substance: FELBINAC
     Indication: NECK PAIN
     Dosage: UNK, AS NECESSARY
     Route: 062
     Dates: start: 20140711
  11. SUMILU [Concomitant]
     Active Substance: FELBINAC
     Indication: MUSCULOSKELETAL PAIN
  12. MOHRUS [Concomitant]
     Active Substance: KETOPROFEN
     Indication: NECK PAIN
     Dosage: 20-40 MG, AS NECESSARY
     Route: 062
     Dates: start: 20140711
  13. SULTANOL [Concomitant]
     Active Substance: ALBUTEROL SULFATE
     Indication: ASTHMA
     Dosage: UNK UNK, AS NECESSARY
     Route: 055
     Dates: start: 20141213
  14. FEXOFENADINE HYDROCHLORIDE. [Concomitant]
     Active Substance: FEXOFENADINE HYDROCHLORIDE
     Indication: URTICARIA
     Dosage: 60 MG, AS NECESSARY
     Route: 048
     Dates: start: 2013
  15. SUMILU [Concomitant]
     Active Substance: FELBINAC
     Indication: BACK PAIN
  16. MOHRUS [Concomitant]
     Active Substance: KETOPROFEN
     Indication: BACK PAIN
  17. FUROZIN [Concomitant]
     Active Substance: CARPRONIUM CHLORIDE
     Indication: ALOPECIA
     Dosage: UNK ML, AS NECESSARY
     Route: 061
     Dates: start: 20141229
  18. SPIRIVA [Concomitant]
     Active Substance: TIOTROPIUM BROMIDE MONOHYDRATE
     Indication: BRONCHITIS
     Dosage: UNK,UNK, AS NECESSARY
     Route: 048
     Dates: start: 20150320
  19. TIGER BALM [Concomitant]
     Active Substance: CAMPHOR (SYNTHETIC)\CAPSICUM OLEORESIN\MENTHOL\METHYL SALICYLATE
     Indication: BACK PAIN
  20. LAXOBERON [Concomitant]
     Active Substance: SODIUM PICOSULFATE
     Indication: CONSTIPATION
     Dosage: UNK ML, AS NECESSARY
     Route: 048
     Dates: start: 20150409
  21. RABEPRAZOLE SODIUM. [Concomitant]
     Active Substance: RABEPRAZOLE SODIUM
     Indication: GASTRITIS
     Dosage: 20 MG, QD
     Route: 048
     Dates: start: 20150216
  22. MAGNESIUM OXIDE. [Concomitant]
     Active Substance: MAGNESIUM OXIDE
     Indication: CONSTIPATION
     Dosage: 330 MG, AS NECESSARY
     Route: 048
     Dates: start: 20150408
  23. BENZETHONIUM CHLORIDE [Concomitant]
     Active Substance: BENZETHONIUM CHLORIDE
     Indication: INFECTION
     Dosage: UNK UNK, AS NECESSARY
     Route: 050
     Dates: start: 20140608
  24. AMINOETHYL SULFONIC ACID [Concomitant]
     Indication: DRY EYE
     Dosage: UNK UNK, AS NECESSARY
     Route: 061
     Dates: start: 1990
  25. TIGER BALM [Concomitant]
     Active Substance: CAMPHOR (SYNTHETIC)\CAPSICUM OLEORESIN\MENTHOL\METHYL SALICYLATE
     Indication: NECK PAIN
     Dosage: UNK G, AS NECESSARY
     Route: 062
  26. SYMBICORT [Concomitant]
     Active Substance: BUDESONIDE\FORMOTEROL FUMARATE DIHYDRATE
     Indication: ASTHMA
     Dosage: UNK UNK, AS NECESSARY
     Route: 055
     Dates: start: 1990
  27. SODIUM CHLORIDE. [Concomitant]
     Active Substance: SODIUM CHLORIDE
     Indication: DRY EYE
     Dosage: UNK, AS NECESSARY
     Route: 061
     Dates: start: 1990
  28. POTASSIUM CHLORIDE. [Concomitant]
     Active Substance: POTASSIUM CHLORIDE
     Indication: DRY EYE
     Dosage: UNK, AS NECESSARY
     Route: 061
     Dates: start: 1990
  29. RABEPRAZOLE SODIUM. [Concomitant]
     Active Substance: RABEPRAZOLE SODIUM
     Indication: PROPHYLAXIS
  30. TIGER BALM [Concomitant]
     Active Substance: CAMPHOR (SYNTHETIC)\CAPSICUM OLEORESIN\MENTHOL\METHYL SALICYLATE
     Indication: MUSCULOSKELETAL PAIN
  31. TIGER BALM [Concomitant]
     Active Substance: CAMPHOR (SYNTHETIC)\CAPSICUM OLEORESIN\MENTHOL\METHYL SALICYLATE
     Indication: BACK PAIN

REACTIONS (1)
  - Cardiac hypertrophy [Recovering/Resolving]

NARRATIVE: CASE EVENT DATE: 20150811
